FAERS Safety Report 8544148-9 (Version None)
Quarter: 2012Q3

REPORT INFORMATION
  Report Type: 
  Country: None (occurrence: None)
  Receive Date: 20120727
  Receipt Date: 20120717
  Transmission Date: 20120928
  Serious: Yes (Hospitalization)
  Sender: FDA-Public Use
  Company Number: US-BAYER-2011-090977

PATIENT
  Age: 25 Year
  Sex: Female
  Weight: 97.506 kg

DRUGS (5)
  1. LASIX [Concomitant]
     Indication: LYMPHOEDEMA
     Dosage: UNK
     Dates: start: 20090101
  2. YASMIN [Suspect]
     Indication: CONTRACEPTION
     Dosage: UNK
     Dates: start: 20031201, end: 20090901
  3. LEXAPRO [Concomitant]
     Indication: ANXIETY
  4. DROSPIRENONE AND ETHINYL ESTRADIOL [Suspect]
     Indication: CONTRACEPTION
     Dosage: UNK
     Dates: start: 20031201, end: 20090901
  5. LEXAPRO [Concomitant]
     Indication: DEPRESSION
     Dosage: UNK

REACTIONS (8)
  - ANXIETY [None]
  - EMOTIONAL DISTRESS [None]
  - MENTAL DISORDER [None]
  - DEPRESSION [None]
  - PULMONARY EMBOLISM [None]
  - INJURY [None]
  - PSYCHOLOGICAL TRAUMA [None]
  - PAIN [None]
